FAERS Safety Report 8502233-1 (Version None)
Quarter: 2012Q3

REPORT INFORMATION
  Report Type: 
  Country: None (occurrence: None)
  Receive Date: 20120711
  Receipt Date: 20120706
  Transmission Date: 20120928
  Serious: Yes (Other)
  Sender: FDA-Public Use
  Company Number: PHHY2012GB058626

PATIENT
  Age: 70 Year
  Sex: Male
  Weight: 97 kg

DRUGS (4)
  1. WARFARIN SODIUM [Concomitant]
     Dates: start: 20120306, end: 20120513
  2. RAMIPRIL [Concomitant]
     Dates: start: 20120306, end: 20120513
  3. SIMVASTATIN [Suspect]
  4. BISOPROLOL FUMARATE [Concomitant]
     Dates: start: 20120306, end: 20120513

REACTIONS (2)
  - AMNESIA [None]
  - CONFUSIONAL STATE [None]
